FAERS Safety Report 24611852 (Version 1)
Quarter: 2024Q4

REPORT INFORMATION
  Report Type: Spontaneous
  Country: US (occurrence: US)
  Receive Date: 20241113
  Receipt Date: 20241113
  Transmission Date: 20250114
  Serious: Yes (Other)
  Sender: JOHNSON AND JOHNSON
  Company Number: US-JNJFOC-20241105827

PATIENT
  Age: 67 Year
  Sex: Female
  Weight: 52.1 kg

DRUGS (8)
  1. CARVYKTI [Suspect]
     Active Substance: CILTACABTAGENE AUTOLEUCEL
     Indication: Plasma cell myeloma
     Route: 065
     Dates: start: 20240503
  2. METHYLPREDNISOLONE [Concomitant]
     Active Substance: METHYLPREDNISOLONE
     Dates: start: 20240318, end: 20240418
  3. IXAZOMIB [Concomitant]
     Active Substance: IXAZOMIB
     Dates: start: 20240318, end: 20240418
  4. CYCLOPHOSPHAMIDE [Concomitant]
     Active Substance: CYCLOPHOSPHAMIDE
     Indication: Chemotherapy
     Route: 065
  5. FLUDARABINE [Concomitant]
     Active Substance: FLUDARABINE PHOSPHATE
     Indication: Chemotherapy
     Dates: start: 20240428
  6. ACYCLOVIR [Concomitant]
     Active Substance: ACYCLOVIR
     Indication: Herpes zoster
  7. SULFATRIM [Concomitant]
     Active Substance: SULFAMETHOXAZOLE\TRIMETHOPRIM
     Indication: Pneumocystis jirovecii pneumonia
  8. HUMAN IMMUNOGLOBULIN G [Concomitant]
     Active Substance: HUMAN IMMUNOGLOBULIN G
     Route: 042
     Dates: start: 202408

REACTIONS (12)
  - Duodenitis [Unknown]
  - Gastric ulcer [Unknown]
  - Malnutrition [Not Recovered/Not Resolved]
  - Pulmonary embolism [Unknown]
  - Cytokine release syndrome [Unknown]
  - Diarrhoea [Not Recovered/Not Resolved]
  - Parkinsonism [Recovering/Resolving]
  - Ear haemorrhage [Recovered/Resolved]
  - Lip dry [Unknown]
  - Norovirus test positive [Unknown]
  - Cholelithiasis [Unknown]
  - Hypertransaminasaemia [Recovering/Resolving]

NARRATIVE: CASE EVENT DATE: 20240508
